FAERS Safety Report 21888705 (Version 1)
Quarter: 2023Q1

REPORT INFORMATION
  Report Type: Spontaneous
  Country: US (occurrence: US)
  Receive Date: 20230120
  Receipt Date: 20230120
  Transmission Date: 20230418
  Serious: Yes (Death, Hospitalization, Other)
  Sender: FDA-Public Use
  Company Number: US-APOTEX-2023AP002261

PATIENT
  Age: 17 Year
  Sex: Female

DRUGS (2)
  1. FENTANYL [Suspect]
     Active Substance: FENTANYL
     Indication: Product used for unknown indication
     Dosage: UNK
     Route: 065
  2. OXYCODONE [Suspect]
     Active Substance: OXYCODONE
     Indication: Product used for unknown indication
     Dosage: 1 DOSAGE FORM
     Route: 048

REACTIONS (13)
  - Intentional product use issue [Fatal]
  - Cardio-respiratory arrest [Fatal]
  - Hyperhidrosis [Fatal]
  - Salivary hypersecretion [Fatal]
  - Depressed level of consciousness [Fatal]
  - Hypotension [Fatal]
  - Tachycardia [Fatal]
  - Urine output increased [Fatal]
  - Hypernatraemia [Fatal]
  - Pulmonary congestion [Fatal]
  - Brain oedema [Fatal]
  - Cerebral congestion [Fatal]
  - Respiratory depression [Fatal]

NARRATIVE: CASE EVENT DATE: 20210101
